FAERS Safety Report 5203783-6 (Version None)
Quarter: 2007Q1

REPORT INFORMATION
  Report Type: 
  Country: None (occurrence: None)
  Receive Date: 20070109
  Receipt Date: 20070109
  Transmission Date: 20070707
  Serious: Yes (Life-Threatening, Hospitalization)
  Sender: FDA-Public Use
  Company Number: None

PATIENT
  Age: 22 Year
  Sex: Male

DRUGS (1)
  1. AFRIN [Suspect]
     Indication: RHINOPLASTY
     Dosage: 10 ML; ONCE; NAS
     Route: 045
     Dates: start: 20061103, end: 20061103

REACTIONS (11)
  - ACCIDENTAL EXPOSURE [None]
  - ARRHYTHMIA SUPRAVENTRICULAR [None]
  - BRADYCARDIA [None]
  - CARDIAC DISORDER [None]
  - DIZZINESS POSTURAL [None]
  - DYSPNOEA [None]
  - EXTRASYSTOLES [None]
  - HYPERTENSION [None]
  - MALAISE [None]
  - SUPRAVENTRICULAR TACHYCARDIA [None]
  - WRONG DRUG ADMINISTERED [None]
